FAERS Safety Report 18464653 (Version 1)
Quarter: 2020Q4

REPORT INFORMATION
  Report Type: Spontaneous
  Country: US (occurrence: US)
  Receive Date: 20201104
  Receipt Date: 20201104
  Transmission Date: 20210114
  Serious: Yes (Hospitalization)
  Sender: FDA-Public Use
  Company Number: US-PFIZER INC-2016232636

PATIENT
  Age: 43 Year
  Sex: Male

DRUGS (28)
  1. OXYCODONE AND ACETAMINOPHEN [Concomitant]
     Active Substance: ACETAMINOPHEN\OXYCODONE HYDROCHLORIDE
     Indication: PAIN
     Dosage: UNK, AS NEEDED(5-325MG TAB: TAKE 1 TABLET BY MOUTH EVERY 6 HOURS AS NEEDED)
     Route: 048
  2. INSULIN GLARGINE [Concomitant]
     Active Substance: INSULIN GLARGINE
     Dosage: 25 IU, 1X/DAY(25 UNITS BY SUBCUTANEOUS ROUTE AT BEDTIME)
     Route: 058
  3. RAPAMUNE [Suspect]
     Active Substance: SIROLIMUS
     Dosage: 2 MG, DAILY(TAKE 2 TABLETS BY MOUTH DAILY  )
     Route: 048
  4. DAPSONE. [Concomitant]
     Active Substance: DAPSONE
     Dosage: 100 MG, DAILY(TAKE 1 TABLET BY MOUTH DAILY.)
     Route: 048
  5. NYSTATIN. [Concomitant]
     Active Substance: NYSTATIN
     Dosage: 1 ML, 4X/DAY(1 ML BY SWISH + SWALLOW 4 TIMES DAILY)
  6. HYDRALAZINE HYDROCHLORIDE. [Concomitant]
     Active Substance: HYDRALAZINE HYDROCHLORIDE
     Dosage: 25 MG, 3X/DAY(TAKE 1 TABLET BY MOUTH 3 TIMES DAILY)
     Route: 048
  7. RAPAMUNE [Suspect]
     Active Substance: SIROLIMUS
     Indication: PROPHYLAXIS AGAINST TRANSPLANT REJECTION
     Dosage: 4 MG, DAILY(TAKE 4 TABLETS BY MOUTH DAILY)
     Route: 048
  8. ASPIRIN [ACETYLSALICYLIC ACID] [Concomitant]
     Active Substance: ASPIRIN
     Dosage: 81 MG, DAILY(81MG PO (PER ORAL) TABS TAKE BY MOUTH DAILY)
     Route: 048
  9. FAMOTIDINE. [Concomitant]
     Active Substance: FAMOTIDINE
     Dosage: 20 MG, 2X/DAY(TAKE 1 TABLET BY MOUTH 2 TIMES DAILY)
     Route: 048
  10. CHLORTHALIDONE. [Concomitant]
     Active Substance: CHLORTHALIDONE
     Dosage: 25 MG, DAILY(TAKE 1 TABLET BY MOUTH DAILY)
     Route: 048
  11. AMITRIPTYLINE [Concomitant]
     Active Substance: AMITRIPTYLINE
     Dosage: 25 MG, 1X/DAY(25MG TAB  TAKE 25MG BY MOUTH AT BEDTIME)
     Route: 048
  12. NEORAL [Concomitant]
     Active Substance: CYCLOSPORINE
     Dosage: 500 MG, DAILY(25 MG CAP TAKE 5 CAPSULES BY MOUTH EVERY 12 HOURS)
     Route: 048
  13. ROPINIROLE. [Concomitant]
     Active Substance: ROPINIROLE
     Dosage: 0.5 MG, 2X/DAY
     Route: 048
  14. CIALIS [Concomitant]
     Active Substance: TADALAFIL
     Dosage: 20 MG, AS NEEDED
     Route: 048
  15. FUROSEMIDE. [Concomitant]
     Active Substance: FUROSEMIDE
     Dosage: 40 MG, AS NEEDED
     Route: 048
  16. INSULIN GLARGINE [Concomitant]
     Active Substance: INSULIN GLARGINE
     Dosage: 18 IU, DAILY(18 UNITS BY SUBCUTANEOUS ROUTE A BEDTIME)
     Route: 058
  17. CITALOPRAM [Concomitant]
     Active Substance: CITALOPRAM HYDROBROMIDE
     Dosage: 20 MG, DAILY(TAKE 1 TABLET BY MOUTH DAILY)
     Route: 048
  18. ISOSORBIDE DINITRATE. [Concomitant]
     Active Substance: ISOSORBIDE DINITRATE
     Dosage: 20 MG, 3X/DAY(TAKE 1 TABLET BY MOUTH 3 TIMES DAILY)
     Route: 048
  19. LIPITOR [Concomitant]
     Active Substance: ATORVASTATIN CALCIUM
     Dosage: 20 MG, DAILY(10 MG TAB  TAKE 2 TABLETS BY MOUTH DAILY)
     Route: 048
  20. EPOETIN ALFA [Concomitant]
     Active Substance: ERYTHROPOIETIN
     Dosage: 1 ML, WEEKLY
     Route: 058
  21. PREDNISONE. [Concomitant]
     Active Substance: PREDNISONE
     Dosage: 10 MG, DAILY
     Route: 048
  22. DOCUSATE [DOCUSATE SODIUM] [Concomitant]
     Dosage: 200 MG, 2X/DAY(TAKE 2 CAPSULES BY MOUTH 2 TIMES DAILY)
     Route: 048
  23. NEORAL [Concomitant]
     Active Substance: CYCLOSPORINE
     Indication: RENAL TRANSPLANT
     Dosage: 400 MG, DAILY(TAKE 2 CAPSULES BY MOUTH EVERY 12 HOURS)
     Route: 048
  24. POLYSACCHARIDE IRON [Concomitant]
     Dosage: 150 MG, DAILY(150 MG CAP  TAKE 1 CAPSULE BY MOUTH DAILY)
     Route: 048
  25. RAPAMUNE [Suspect]
     Active Substance: SIROLIMUS
     Dosage: 1.5 MG, DAILY (TAKE 3 TABLETS BY MOUTH EVERY 24 HOURS)
     Route: 048
  26. COREG [Concomitant]
     Active Substance: CARVEDILOL
     Dosage: 12.5 MG, 2X/DAY(12.5 MG, 2X/DAY(TAKE 1 TABLET BY MOUTH 2 TIMES DAILY WITH MEALS.)
     Route: 048
  27. MYFORTIC [Concomitant]
     Active Substance: MYCOPHENOLATE SODIUM
     Indication: RENAL TRANSPLANT
     Dosage: 720 MG, 2X/DAY(TAKE 2 TABLETS BY MOUTH 2 TIMES DAILY)
     Route: 048
  28. INSULIN LISPRO [Concomitant]
     Active Substance: INSULIN LISPRO
     Dosage: 1 IU, DAILY(1 UNIT INSULIN EVERY MEAL AND AT BEDTIME)
     Route: 058

REACTIONS (3)
  - Escherichia infection [Unknown]
  - Sepsis [Unknown]
  - Limb injury [Unknown]
